FAERS Safety Report 9269752 (Version 1)
Quarter: 2013Q2

REPORT INFORMATION
  Report Type: Spontaneous
  Country: US (occurrence: US)
  Receive Date: 20130503
  Receipt Date: 20130503
  Transmission Date: 20140414
  Serious: No
  Sender: FDA-Public Use
  Company Number: US-VERTEX PHARMACEUTICALS INC-2013-005673

PATIENT
  Age: 66 Year
  Sex: Female

DRUGS (4)
  1. INCIVEK [Suspect]
     Indication: HEPATITIS C
     Dosage: 750 MG, TID
     Route: 048
     Dates: start: 20130409
  2. RIBAVIRIN [Suspect]
     Indication: HEPATITIS C
     Dosage: 2 DF, BID
     Route: 048
     Dates: start: 20130409
  3. PEGASYS [Suspect]
     Indication: HEPATITIS C
     Dosage: 180 ?G, WEEKLY
     Route: 058
     Dates: start: 20130409
  4. ZANTAC [Concomitant]
     Indication: ABDOMINAL DISCOMFORT
     Route: 048

REACTIONS (4)
  - Constipation [Not Recovered/Not Resolved]
  - Flatulence [Not Recovered/Not Resolved]
  - Malaise [Not Recovered/Not Resolved]
  - Platelet count decreased [Not Recovered/Not Resolved]
